FAERS Safety Report 5399772-1 (Version None)
Quarter: 2007Q3

REPORT INFORMATION
  Report Type: 
  Country: None (occurrence: None)
  Receive Date: 20070730
  Receipt Date: 20070725
  Transmission Date: 20080115
  Serious: Yes (Death, Hospitalization)
  Sender: FDA-Public Use
  Company Number: US-RB-007504-07

PATIENT
  Age: 56 Year
  Sex: Male

DRUGS (2)
  1. SUBOXONE [Suspect]
     Dosage: BID DOSING
     Route: 060
     Dates: start: 20070724, end: 20070725
  2. VALIUM [Concomitant]
     Indication: ANXIETY

REACTIONS (1)
  - ACUTE MYOCARDIAL INFARCTION [None]
